FAERS Safety Report 6982451-4 (Version None)
Quarter: 2010Q3

REPORT INFORMATION
  Report Type: 
  Country: None (occurrence: None)
  Receive Date: 20100914
  Receipt Date: 20100126
  Transmission Date: 20110219
  Serious: Yes (Hospitalization)
  Sender: FDA-Public Use
  Company Number: US-PFIZER INC-2010012200

PATIENT
  Age: 30 Year
  Sex: Female
  Weight: 109 kg

DRUGS (4)
  1. LYRICA [Suspect]
     Indication: FIBROMYALGIA
     Dosage: 300 MG, 1X/DAY
     Route: 048
     Dates: end: 20100124
  2. BUSPAR [Concomitant]
     Indication: ANXIETY
  3. METOPROLOL TARTRATE [Concomitant]
     Indication: HYPERTENSION
  4. CYMBALTA [Concomitant]
     Indication: DEPRESSION

REACTIONS (1)
  - SUICIDAL IDEATION [None]
